FAERS Safety Report 9579994 (Version 1)
Quarter: 2013Q3

REPORT INFORMATION
  Report Type: Spontaneous
  Country: FR (occurrence: None)
  Receive Date: 20130916
  Receipt Date: 20130916
  Transmission Date: 20140515
  Serious: Yes (Other)
  Sender: FDA-Public Use
  Company Number: JPI-P-025558

PATIENT
  Age: 45 Year
  Sex: Male

DRUGS (4)
  1. XYREM (500 MILLIGRAM/MILLILITERS, SOLUTION) (SODIUM OXYBATE) [Suspect]
     Indication: CATAPLEXY
     Route: 048
     Dates: start: 20120626, end: 201207
  2. TRI-THERAPY [Concomitant]
  3. MODIODAL (MODAFINIL) [Concomitant]
  4. ANAFERANIL (CLOMIPRAMINE HYDROCHLORIDE) [Concomitant]

REACTIONS (9)
  - Depression [None]
  - Condition aggravated [None]
  - Suicidal ideation [None]
  - Anxiety [None]
  - Apathy [None]
  - Diarrhoea [None]
  - Nausea [None]
  - Weight decreased [None]
  - Decreased appetite [None]
